FAERS Safety Report 5710744-7 (Version None)
Quarter: 2008Q2

REPORT INFORMATION
  Report Type: 
  Country: None (occurrence: None)
  Receive Date: 20080421
  Receipt Date: 20080408
  Transmission Date: 20081010
  Serious: Yes (Hospitalization, Other)
  Sender: FDA-Public Use
  Company Number: JP-ELI_LILLY_AND_COMPANY-JP200711000029

PATIENT
  Sex: Female
  Weight: 40 kg

DRUGS (5)
  1. PEMETREXED [Suspect]
     Indication: PLEURAL MESOTHELIOMA MALIGNANT
     Dosage: 500 MG, OTHER
     Route: 042
     Dates: start: 20070613, end: 20071106
  2. CISPLATIN [Suspect]
     Indication: PLEURAL MESOTHELIOMA MALIGNANT
     Dosage: 70 MG, OTHER
     Route: 042
     Dates: start: 20070613, end: 20070613
  3. CISPLATIN [Suspect]
     Dosage: 50 MG, OTHER
     Route: 042
     Dates: start: 20070702, end: 20071106
  4. FOLIAMIN [Concomitant]
     Dosage: 0.5 MG, DAILY (1/D)
     Route: 048
     Dates: start: 20070613, end: 20071113
  5. CYANOCOBALAMIN [Concomitant]
     Dosage: 500 UG, DAILY (1/D)
     Route: 030
     Dates: start: 20070606, end: 20070606

REACTIONS (6)
  - ALTERED STATE OF CONSCIOUSNESS [None]
  - DEMENTIA [None]
  - HAEMOGLOBIN DECREASED [None]
  - LYMPHOCYTE COUNT DECREASED [None]
  - MALAISE [None]
  - RESTLESSNESS [None]
